FAERS Safety Report 8804454 (Version 2)
Quarter: 2013Q2

REPORT INFORMATION
  Report Type: Spontaneous
  Country: JP (occurrence: JP)
  Receive Date: 20120923
  Receipt Date: 20130616
  Transmission Date: 20140414
  Serious: Yes (Other)
  Sender: FDA-Public Use
  Company Number: JP-009507513-1209JPN007052

PATIENT
  Age: 68 Year
  Sex: Male
  Weight: 58 kg

DRUGS (6)
  1. TEMODAL [Suspect]
     Indication: GLIOBLASTOMA MULTIFORME
     Dosage: 120 MG, QD
     Route: 048
     Dates: start: 20120618, end: 20120716
  2. KEPPRA [Concomitant]
     Indication: CONVULSION
     Dosage: 250 MG, BID
     Route: 048
     Dates: start: 20120618, end: 20130530
  3. PREDONINE [Concomitant]
     Indication: CONVULSION
     Dosage: 30 MG, QD
     Route: 048
     Dates: start: 20120618, end: 20130530
  4. PARIET [Concomitant]
     Indication: PROPHYLAXIS AGAINST GASTROINTESTINAL ULCER
     Dosage: 10 MG, QD
     Dates: start: 20120618, end: 20130530
  5. BAKTAR [Concomitant]
     Indication: INFECTION PROPHYLAXIS
     Dosage: 1 G, BID
     Route: 048
     Dates: start: 20120618, end: 20120716
  6. KAMAG G [Concomitant]
     Indication: CONSTIPATION PROPHYLAXIS
     Dosage: 0.5 G, TID
     Route: 048
     Dates: start: 20120618, end: 20120716

REACTIONS (1)
  - Drug eruption [Recovered/Resolved]
